FAERS Safety Report 15960499 (Version 1)
Quarter: 2019Q1

REPORT INFORMATION
  Report Type: Spontaneous
  Country: US (occurrence: US)
  Receive Date: 20190213
  Receipt Date: 20190213
  Transmission Date: 20190417
  Serious: No
  Sender: FDA-Public Use
  Company Number: None

PATIENT
  Age: 61 Year
  Sex: Female
  Weight: 72 kg

DRUGS (1)
  1. AJOVY [Suspect]
     Active Substance: FREMANEZUMAB-VFRM
     Indication: MIGRAINE
     Dosage: ?          QUANTITY:1 INJECTION(S);OTHER FREQUENCY:ONCE A MONTH;?
     Route: 058
     Dates: start: 20190128, end: 20190128

REACTIONS (8)
  - Muscle spasms [None]
  - Pain [None]
  - Arthralgia [None]
  - Contusion [None]
  - Insomnia [None]
  - Rash [None]
  - Flushing [None]
  - Therapy non-responder [None]

NARRATIVE: CASE EVENT DATE: 20190128
